FAERS Safety Report 6265302-5 (Version None)
Quarter: 2009Q3

REPORT INFORMATION
  Report Type: 
  Country: None (occurrence: None)
  Receive Date: 20090713
  Receipt Date: 20090702
  Transmission Date: 20100115
  Serious: Yes (Hospitalization)
  Sender: FDA-Public Use
  Company Number: US-BAXTER-2009BH011047

PATIENT
  Age: 49 Year
  Sex: Male

DRUGS (2)
  1. ARALAST [Suspect]
     Indication: ALPHA-1 ANTI-TRYPSIN DEFICIENCY
     Route: 042
     Dates: start: 20090101, end: 20090621
  2. OTHER ANTI-ASTHMATICS, INHALANTS [Concomitant]
     Indication: DYSPNOEA
     Dates: start: 20090622

REACTIONS (5)
  - ASTHENIA [None]
  - CHILLS [None]
  - DYSPNOEA [None]
  - PYREXIA [None]
  - SEPSIS [None]
